FAERS Safety Report 6728738-1 (Version None)
Quarter: 2010Q2

REPORT INFORMATION
  Report Type: 
  Country: None (occurrence: None)
  Receive Date: 20100517
  Receipt Date: 20100513
  Transmission Date: 20101027
  Serious: Yes (Hospitalization)
  Sender: FDA-Public Use
  Company Number: ES-MERCK-1005ESP00013

PATIENT
  Age: 48 Year
  Sex: Male

DRUGS (3)
  1. ISENTRESS [Suspect]
     Indication: HIV INFECTION
     Route: 048
     Dates: start: 20100323
  2. TRUVADA [Concomitant]
     Indication: HIV INFECTION
     Route: 065
  3. METHADONE HYDROCHLORIDE [Concomitant]
     Route: 065

REACTIONS (2)
  - COMPLEX PARTIAL SEIZURES [None]
  - RIB FRACTURE [None]
